FAERS Safety Report 10724991 (Version 2)
Quarter: 2015Q1

REPORT INFORMATION
  Report Type: Spontaneous
  Country: IT (occurrence: IT)
  Receive Date: 20150120
  Receipt Date: 20150121
  Transmission Date: 20150721
  Serious: Yes (Death, Hospitalization, Other)
  Sender: FDA-Public Use
  Company Number: PHHY2015IT006172

PATIENT
  Age: 7 Year
  Sex: Male

DRUGS (3)
  1. METHOTREXATE [Suspect]
     Active Substance: METHOTREXATE
     Indication: STEM CELL TRANSPLANT
     Route: 065
  2. CICLOSPORIN [Suspect]
     Active Substance: CYCLOSPORINE
     Indication: PROPHYLAXIS AGAINST GRAFT VERSUS HOST DISEASE
     Route: 065
  3. METHOTREXATE [Suspect]
     Active Substance: METHOTREXATE
     Indication: PROPHYLAXIS AGAINST GRAFT VERSUS HOST DISEASE

REACTIONS (14)
  - Encephalitis viral [Fatal]
  - Altered state of consciousness [Fatal]
  - Pyrexia [Fatal]
  - Epstein-Barr virus infection [Fatal]
  - Disease progression [Fatal]
  - Dysuria [Unknown]
  - Headache [Fatal]
  - Generalised tonic-clonic seizure [Unknown]
  - Acute lymphocytic leukaemia [Fatal]
  - Pleocytosis [Fatal]
  - Brain injury [Unknown]
  - Blast cell crisis [Fatal]
  - Hemiplegia [Unknown]
  - Vomiting [Fatal]
